FAERS Safety Report 24241857 (Version 1)
Quarter: 2024Q3

REPORT INFORMATION
  Report Type: Spontaneous
  Country: US (occurrence: US)
  Receive Date: 20240823
  Receipt Date: 20240823
  Transmission Date: 20241017
  Serious: Yes (Death, Life-Threatening, Hospitalization, Other)
  Sender: LUPIN
  Company Number: US-LUPIN PHARMACEUTICALS INC.-2024-07740

PATIENT
  Age: 38 Year
  Sex: Male

DRUGS (2)
  1. CARVEDILOL [Suspect]
     Active Substance: CARVEDILOL
     Indication: Product used for unknown indication
     Dosage: UNK
     Route: 065
  2. WARFARIN [Suspect]
     Active Substance: WARFARIN
     Indication: Product used for unknown indication
     Dosage: UNK
     Route: 065

REACTIONS (7)
  - Toxicity to various agents [Fatal]
  - Overdose [Fatal]
  - Acute kidney injury [Unknown]
  - Disseminated intravascular coagulation [Unknown]
  - Metabolic disorder [Unknown]
  - Cardiogenic shock [Unknown]
  - Shock haemorrhagic [Unknown]
